FAERS Safety Report 6619058-4 (Version None)
Quarter: 2010Q1

REPORT INFORMATION
  Report Type: 
  Country: None (occurrence: None)
  Receive Date: 20100308
  Receipt Date: 20100226
  Transmission Date: 20100710
  Serious: Yes (Other)
  Sender: FDA-Public Use
  Company Number: NO-PFIZER INC-2010014825

PATIENT
  Age: 44 Year
  Sex: Female

DRUGS (12)
  1. LIPITOR [Suspect]
     Indication: ATHEROSCLEROSIS PROPHYLAXIS
     Dosage: 20 MG, 1X/DAY
     Route: 048
     Dates: start: 20090401, end: 20090617
  2. LIPITOR [Suspect]
     Route: 048
     Dates: start: 20090401, end: 20090617
  3. PREDNISOLONE [Concomitant]
     Dosage: WITHDRAWN DUE TO A MISUNDERSTANDING 2 WEEKS PRIOR TO 20090908. REINSTATED.
  4. IMUREL [Concomitant]
     Indication: SYSTEMIC LUPUS ERYTHEMATOSUS
     Dosage: DOSED MORNING AND EVENING
     Route: 048
     Dates: start: 20060307, end: 20090625
  5. IMUREL [Concomitant]
     Dosage: DOSED MORNING AND EVENING.
     Route: 048
     Dates: start: 20060307, end: 20090625
  6. LEVOTHYROXINE SODIUM [Concomitant]
     Indication: HYPOTHYROIDISM
     Route: 048
     Dates: start: 19970101
  7. VOLTAREN [Concomitant]
     Indication: ARTHRALGIA
     Dosage: 2-3 TABLETS PER DAY AS NECESSARY
     Route: 048
  8. ALBYL-E [Concomitant]
     Indication: THROMBOSIS PROPHYLAXIS
     Route: 048
  9. PLAQUENIL [Concomitant]
     Indication: SYSTEMIC LUPUS ERYTHEMATOSUS
     Route: 048
     Dates: start: 20010101
  10. PLAVIX [Concomitant]
     Indication: THROMBOSIS PROPHYLAXIS
     Route: 048
  11. CETIRIZINE [Concomitant]
     Indication: HYPERSENSITIVITY
     Route: 048
  12. SELO-ZOK [Concomitant]
     Route: 048

REACTIONS (7)
  - CHILLS [None]
  - COUGH [None]
  - DYSPNOEA [None]
  - FATIGUE [None]
  - LISTLESS [None]
  - MALAISE [None]
  - PYREXIA [None]
